FAERS Safety Report 7191611-1 (Version None)
Quarter: 2010Q4

REPORT INFORMATION
  Report Type: 
  Country: None (occurrence: None)
  Receive Date: 20101223
  Receipt Date: 20101202
  Transmission Date: 20110411
  Serious: Yes (Hospitalization)
  Sender: FDA-Public Use
  Company Number: CH-BAYER-2010-000148

PATIENT
  Age: 67 Year
  Sex: Male

DRUGS (5)
  1. ASPIRIN [Suspect]
     Dosage: DAILY DOSE 100 MG
     Route: 048
     Dates: end: 20090303
  2. ASPIRIN [Suspect]
     Dosage: UNK
     Dates: start: 20090101
  3. ZYLORIC [Concomitant]
     Dosage: DAILY DOSE 100 MG
     Route: 048
  4. AMLODIPINE [Concomitant]
     Dosage: DAILY DOSE 10 MG
     Route: 048
  5. CONCOR PLUS [Concomitant]
     Dosage: DAILY DOSE 1 DF
     Route: 048

REACTIONS (4)
  - GASTROINTESTINAL HAEMORRHAGE [None]
  - HAEMORRHAGIC ANAEMIA [None]
  - MEDICATION ERROR [None]
  - MELAENA [None]
